FAERS Safety Report 15566239 (Version 1)
Quarter: 2018Q4

REPORT INFORMATION
  Report Type: Spontaneous
  Country: US (occurrence: US)
  Receive Date: 20181025
  Receipt Date: 20181025
  Transmission Date: 20190205
  Serious: Yes (Other)
  Sender: FDA-Public Use
  Company Number: None

PATIENT

DRUGS (1)
  1. RECLAST [Suspect]
     Active Substance: ZOLEDRONIC ACID
     Indication: BONE LOSS
     Dosage: 1 YEAR INFUSION; 1ST INFUSION?
     Dates: start: 20180928

REACTIONS (8)
  - Insomnia [None]
  - Fall [None]
  - Malaise [None]
  - Urinary incontinence [None]
  - Pain in extremity [None]
  - Arthralgia [None]
  - Dysstasia [None]
  - Pain [None]

NARRATIVE: CASE EVENT DATE: 20180928
